FAERS Safety Report 25944814 (Version 1)
Quarter: 2025Q4

REPORT INFORMATION
  Report Type: Spontaneous
  Country: US (occurrence: US)
  Receive Date: 20251021
  Receipt Date: 20251021
  Transmission Date: 20260118
  Serious: No
  Sender: Phathom Pharmaceuticals
  Company Number: US-PHATHOM PHARMACEUTICALS INC.-2025PHT02289

PATIENT
  Age: 61 Year
  Sex: Female

DRUGS (13)
  1. VOQUEZNA [Suspect]
     Active Substance: VONOPRAZAN FUMARATE
     Indication: Dyspepsia
     Dosage: 20 MG, 1X/DAY
     Route: 048
     Dates: start: 20250118, end: 20250804
  2. CYCLOBENZAPRINE [Concomitant]
     Active Substance: CYCLOBENZAPRINE
  3. BISCOLAX [Concomitant]
     Active Substance: BISACODYL
  4. LATANOPROST [Concomitant]
     Active Substance: LATANOPROST
  5. PRAVASTATIN [Concomitant]
     Active Substance: PRAVASTATIN
  6. PROGESTERONE [Concomitant]
     Active Substance: PROGESTERONE
  7. THYROID [Concomitant]
     Active Substance: LEVOTHYROXINE\LIOTHYRONINE
  8. LOSARTAN AND HYDROCHLOROTHIAZIDE [Concomitant]
     Active Substance: HYDROCHLOROTHIAZIDE\LOSARTAN POTASSIUM
  9. VALACYCLOVIR [Concomitant]
     Active Substance: VALACYCLOVIR HYDROCHLORIDE
  10. DIAZEPAM [Concomitant]
     Active Substance: DIAZEPAM
  11. TRAZODONE [Concomitant]
     Active Substance: TRAZODONE HYDROCHLORIDE
  12. ZAVZPRET [Concomitant]
     Active Substance: ZAVEGEPANT HYDROCHLORIDE
  13. EMGALITY [Concomitant]
     Active Substance: GALCANEZUMAB-GNLM

REACTIONS (2)
  - Gastrooesophageal reflux disease [Unknown]
  - Oesophageal spasm [Unknown]

NARRATIVE: CASE EVENT DATE: 20250101
